FAERS Safety Report 25771447 (Version 1)
Quarter: 2025Q3

REPORT INFORMATION
  Report Type: Spontaneous
  Country: US (occurrence: US)
  Receive Date: 20250908
  Receipt Date: 20250908
  Transmission Date: 20251021
  Serious: No
  Sender: DOMPE FARMACEUTICI
  Company Number: US-FARMAPROD-202504-1273

PATIENT
  Sex: Female
  Weight: 71.67 kg

DRUGS (14)
  1. OXERVATE [Suspect]
     Active Substance: CENEGERMIN-BKBJ
     Indication: Neurotrophic keratopathy
     Route: 047
  2. ALPHA LIPOIC ACID [Concomitant]
     Active Substance: .ALPHA.-LIPOIC ACID
  3. PRED FORTE [Concomitant]
     Active Substance: PREDNISOLONE ACETATE
  4. VITAMIN B12 [Concomitant]
     Active Substance: CYANOCOBALAMIN
  5. ALPRAZOLAM [Concomitant]
     Active Substance: ALPRAZOLAM
  6. VITAMIN D3 [Concomitant]
     Active Substance: CHOLECALCIFEROL
  7. TIMOLOL MALEATE [Concomitant]
     Active Substance: TIMOLOL MALEATE
  8. CLOPIDOGREL [Concomitant]
     Active Substance: CLOPIDOGREL BISULFATE
  9. NITROGLYCERIN [Concomitant]
     Active Substance: NITROGLYCERIN
  10. REPATHA [Concomitant]
     Active Substance: EVOLOCUMAB
  11. CARVEDILOL [Concomitant]
     Active Substance: CARVEDILOL
  12. TELMISARTAN [Concomitant]
     Active Substance: TELMISARTAN
  13. DESIPRAMINE HYDROCHLORIDE [Concomitant]
     Active Substance: DESIPRAMINE HYDROCHLORIDE
  14. ASPIRIN [Concomitant]
     Active Substance: ASPIRIN

REACTIONS (4)
  - Rhinalgia [Unknown]
  - Nasal oedema [Unknown]
  - Eye pain [Unknown]
  - Eye swelling [Unknown]
